FAERS Safety Report 6574337-4 (Version None)
Quarter: 2010Q1

REPORT INFORMATION
  Report Type: 
  Country: None (occurrence: None)
  Receive Date: 20100201
  Receipt Date: 20090331
  Transmission Date: 20100710
  Serious: Yes (Death, Life-Threatening, Hospitalization)
  Sender: FDA-Public Use
  Company Number: 2010AL000480

PATIENT
  Age: 68 Year
  Sex: Male

DRUGS (11)
  1. FEVERALL [Suspect]
  2. PAROXETINE HCL [Concomitant]
  3. CODEINE SULFATE [Concomitant]
  4. CETIRIZINE HCL [Concomitant]
  5. DIAZEPAM [Concomitant]
  6. MOMETASONE FUROATE [Concomitant]
  7. OMEPRAZOLE [Concomitant]
  8. SIMVASTATIN [Concomitant]
  9. ZOPICLONE [Concomitant]
  10. VENLAFAXINE [Concomitant]
  11. CANDESARTAN [Concomitant]

REACTIONS (2)
  - MULTIPLE DRUG OVERDOSE INTENTIONAL [None]
  - PLATELET COUNT DECREASED [None]
